FAERS Safety Report 22229478 (Version 8)
Quarter: 2024Q1

REPORT INFORMATION
  Report Type: Spontaneous
  Country: US (occurrence: US)
  Receive Date: 20230419
  Receipt Date: 20240129
  Transmission Date: 20240410
  Serious: Yes (Hospitalization, Other)
  Sender: FDA-Public Use
  Company Number: US-PFIZER INC-PV202300070342

PATIENT
  Age: 86 Year
  Sex: Female
  Weight: 61.224 kg

DRUGS (6)
  1. IBRANCE [Suspect]
     Active Substance: PALBOCICLIB
     Indication: Breast cancer metastatic
     Dosage: 150 MG
     Dates: start: 202310
  2. IBRANCE [Suspect]
     Active Substance: PALBOCICLIB
     Dosage: 125 MG
  3. IBRANCE [Suspect]
     Active Substance: PALBOCICLIB
     Dosage: 1 TABLET IN THE MORNING, NO BREAK IN THERAPY
     Route: 048
  4. IBRANCE [Suspect]
     Active Substance: PALBOCICLIB
     Dosage: 75 MG
  5. IBRANCE [Suspect]
     Active Substance: PALBOCICLIB
     Dosage: TAKE 1 TABLET IN THE MORNING. FOR 21 DAYS ON, 7 DAYS OFF OF A 28 DAY CYCLE
     Route: 048
  6. IBRANCE [Suspect]
     Active Substance: PALBOCICLIB
     Dosage: 100 MG

REACTIONS (12)
  - Pneumonia [Recovered/Resolved]
  - COVID-19 [Recovered/Resolved]
  - Pain [Recovering/Resolving]
  - Off label use [Unknown]
  - Overdose [Unknown]
  - Neoplasm progression [Unknown]
  - Malaise [Recovered/Resolved]
  - Decreased immune responsiveness [Unknown]
  - Illness [Unknown]
  - Muscular weakness [Unknown]
  - Confusional state [Unknown]
  - Gait disturbance [Unknown]
